FAERS Safety Report 5391989-5 (Version None)
Quarter: 2007Q3

REPORT INFORMATION
  Report Type: 
  Country: None (occurrence: None)
  Receive Date: 20070720
  Receipt Date: 20070711
  Transmission Date: 20080115
  Serious: Yes (Other)
  Sender: FDA-Public Use
  Company Number: US-JNJFOC-20070702910

PATIENT
  Sex: Female
  Weight: 90.72 kg

DRUGS (3)
  1. FENTANYL TRANSDERMAL SYSTEM [Suspect]
     Indication: PAIN
     Route: 062
  2. FIORICET [Concomitant]
     Indication: HEADACHE
     Route: 048
  3. OXYCODONE HCL [Concomitant]
     Indication: BREAKTHROUGH PAIN
     Dosage: 1-2 EVERY 4 HOURS AS NEEDED
     Route: 048

REACTIONS (6)
  - ANXIETY [None]
  - ARTHRALGIA [None]
  - CONVULSION [None]
  - HYPERHIDROSIS [None]
  - HYPERSENSITIVITY [None]
  - URINARY TRACT INFECTION [None]
